FAERS Safety Report 17923832 (Version 1)
Quarter: 2020Q2

REPORT INFORMATION
  Report Type: Spontaneous
  Country: CN (occurrence: CN)
  Receive Date: 20200622
  Receipt Date: 20200622
  Transmission Date: 20200714
  Serious: Yes (Hospitalization)
  Sender: FDA-Public Use
  Company Number: CN-GLASSHOUSE PHARMACEUTICALS LIMITED CA-2020GLH00010

PATIENT
  Age: 34 Year
  Sex: Male

DRUGS (7)
  1. VITAMIN C 200 MG + NORMAL SALINE [Concomitant]
     Route: 042
  2. PERITONEAL DIALYSIS FLUID [Concomitant]
     Dosage: 1000 ML
     Route: 033
  3. NIFEDIPINE CONTROLLED RELEASE TABLETS [Concomitant]
     Dosage: 20 MG, 2X/DAY
     Route: 065
  4. NORMAL SALINE [Concomitant]
     Active Substance: SODIUM CHLORIDE
     Route: 042
  5. METOPROLOL TARTRATE. [Concomitant]
     Active Substance: METOPROLOL TARTRATE
     Dosage: 47.5 MG, 1X/DAY
     Route: 048
  6. CLINDAMYCIN. [Suspect]
     Active Substance: CLINDAMYCIN
     Dosage: 0.6 MG
     Route: 042
     Dates: start: 20190502
  7. DEXAMETHASONE. [Concomitant]
     Active Substance: DEXAMETHASONE
     Route: 042

REACTIONS (1)
  - Encephalopathy [Recovered/Resolved]

NARRATIVE: CASE EVENT DATE: 20190503
